FAERS Safety Report 8624391-0 (Version None)
Quarter: 2012Q3

REPORT INFORMATION
  Report Type: 
  Country: None (occurrence: None)
  Receive Date: 20120827
  Receipt Date: 20120822
  Transmission Date: 20120928
  Serious: Yes (Other)
  Sender: FDA-Public Use
  Company Number: US-PFIZER INC-2012206748

PATIENT
  Sex: Male

DRUGS (3)
  1. EFFEXOR [Concomitant]
     Indication: DEPRESSION
     Dosage: UNK
  2. GEODON [Suspect]
     Dosage: 120 MG, 1X/DAY
     Route: 048
     Dates: start: 20120701
  3. GEODON [Suspect]
     Indication: BIPOLAR DISORDER
     Dosage: 120 MG, 1X/DAY
     Route: 048
     Dates: end: 20120701

REACTIONS (3)
  - HEPATITIS C [None]
  - HEPATIC ENZYME INCREASED [None]
  - WITHDRAWAL SYNDROME [None]
